FAERS Safety Report 11618364 (Version 2)
Quarter: 2015Q4

REPORT INFORMATION
  Report Type: Spontaneous
  Country: TR (occurrence: TR)
  Receive Date: 20151012
  Receipt Date: 20151022
  Transmission Date: 20160304
  Serious: Yes (Other)
  Sender: FDA-Public Use
  Company Number: TR-ROCHE-1643743

PATIENT
  Sex: Male

DRUGS (2)
  1. XOLAIR [Suspect]
     Active Substance: OMALIZUMAB
     Indication: URTICARIA
     Dosage: 2 DF
     Route: 065
     Dates: start: 20150101, end: 20150601
  2. XOLAIR [Suspect]
     Active Substance: OMALIZUMAB
     Route: 065
     Dates: start: 20150928

REACTIONS (5)
  - Acne [Unknown]
  - Blood immunoglobulin E increased [Unknown]
  - Urticaria [Unknown]
  - Hyperhidrosis [Recovered/Resolved]
  - Erythema [Recovered/Resolved]
